FAERS Safety Report 24302968 (Version 2)
Quarter: 2024Q3

REPORT INFORMATION
  Report Type: Spontaneous
  Country: US (occurrence: US)
  Receive Date: 20240910
  Receipt Date: 20240926
  Transmission Date: 20241016
  Serious: Yes (Hospitalization)
  Sender: BIOVITRUM
  Company Number: US-BIOVITRUM-2024-US-011813

PATIENT
  Age: 80 Year
  Sex: Female

DRUGS (2)
  1. VONJO [Suspect]
     Active Substance: PACRITINIB
     Indication: Marrow hyperplasia
     Dosage: TWICE DAILY
     Route: 048
     Dates: start: 202406
  2. VONJO [Suspect]
     Active Substance: PACRITINIB
     Indication: Myelofibrosis

REACTIONS (4)
  - Haemoglobin decreased [Unknown]
  - Hypertension [Unknown]
  - Oedema [Unknown]
  - Dyspnoea [Unknown]
